FAERS Safety Report 9528349 (Version 2)
Quarter: 2013Q4

REPORT INFORMATION
  Report Type: Spontaneous
  Country: JP (occurrence: JP)
  Receive Date: 20130917
  Receipt Date: 20131024
  Transmission Date: 20140711
  Serious: Yes (Other)
  Sender: FDA-Public Use
  Company Number: JP-SANOFI-AVENTIS-2013SA091503

PATIENT
  Age: 16 Year
  Sex: Female

DRUGS (3)
  1. DESMOPRESSIN ACETATE [Suspect]
     Indication: ENURESIS
     Route: 045
     Dates: start: 20130808, end: 20130831
  2. MINIRIN [Suspect]
     Indication: ENURESIS
     Route: 048
     Dates: start: 20130901, end: 20130904
  3. MINIRIN [Suspect]
     Indication: ENURESIS
     Route: 048
     Dates: start: 20130905, end: 20130909

REACTIONS (2)
  - Hypoaesthesia [Recovered/Resolved]
  - Oedema peripheral [Recovered/Resolved]
